FAERS Safety Report 23629126 (Version 2)
Quarter: 2024Q1

REPORT INFORMATION
  Report Type: Spontaneous
  Country: JP (occurrence: JP)
  Receive Date: 20240313
  Receipt Date: 20240325
  Transmission Date: 20240410
  Serious: Yes (Other)
  Sender: FDA-Public Use
  Company Number: JP-BEH-2024169697

PATIENT
  Age: 23 Year
  Sex: Male
  Weight: 62 kg

DRUGS (4)
  1. IDELVION [Suspect]
     Active Substance: COAGULATION FACTOR IX RECOMBINANT HUMAN
     Indication: Haemostasis
     Dosage: 3500 INTERNATIONAL UNIT, QW
     Route: 042
     Dates: start: 202402
  2. IDELVION [Suspect]
     Active Substance: COAGULATION FACTOR IX RECOMBINANT HUMAN
     Indication: Haemostasis
     Dosage: 3500 INTERNATIONAL UNIT, QW
     Route: 042
     Dates: start: 202402
  3. IDELVION [Suspect]
     Active Substance: COAGULATION FACTOR IX RECOMBINANT HUMAN
     Dosage: 3500 INTERNATIONAL UNIT, SINGLE
     Route: 042
     Dates: start: 202402, end: 202402
  4. IDELVION [Suspect]
     Active Substance: COAGULATION FACTOR IX RECOMBINANT HUMAN
     Dosage: 3500 INTERNATIONAL UNIT, SINGLE
     Route: 042
     Dates: start: 202402, end: 202402

REACTIONS (2)
  - Melaena [Recovered/Resolved]
  - Abdominal pain [Unknown]

NARRATIVE: CASE EVENT DATE: 20240201
